FAERS Safety Report 20450502 (Version 1)
Quarter: 2022Q1

REPORT INFORMATION
  Report Type: Spontaneous
  Country: US (occurrence: US)
  Receive Date: 20220209
  Receipt Date: 20220209
  Transmission Date: 20220423
  Serious: Yes (Other)
  Sender: FDA-Public Use
  Company Number: US-PERRIGO-22US001404

PATIENT
  Age: 56 Year
  Sex: Male
  Weight: 79.365 kg

DRUGS (5)
  1. MINOXIDIL [Suspect]
     Active Substance: MINOXIDIL
     Indication: Alopecia
     Dosage: UNKNOWN, QD
     Route: 061
     Dates: start: 202201, end: 202201
  2. FINASTERIDE [Suspect]
     Active Substance: FINASTERIDE
     Indication: Alopecia
     Dosage: UNKNOWN, UNKNOWN
     Route: 048
     Dates: start: 202201, end: 202201
  3. UNSPECIFIED INGREDIENT [Suspect]
     Active Substance: UNSPECIFIED INGREDIENT
     Indication: Product used for unknown indication
     Dosage: UNKNOWN, UNKNOWN
     Route: 061
     Dates: start: 202201, end: 202201
  4. HYDROCHLOROTHIAZIDE\VALSARTAN [Concomitant]
     Active Substance: HYDROCHLOROTHIAZIDE\VALSARTAN
     Indication: Hypertension
     Dosage: UNKNOWN, UNKNOWN
     Route: 065
     Dates: start: 2017
  5. ASPIRIN [Concomitant]
     Active Substance: ASPIRIN
     Indication: Prophylaxis
     Dosage: UNKNOWN, UNKNOWN
     Route: 065

REACTIONS (9)
  - Blindness transient [Recovered/Resolved]
  - Asthenia [Recovered/Resolved]
  - Adverse drug reaction [Recovered/Resolved]
  - Arthralgia [Recovered/Resolved]
  - Headache [Recovered/Resolved]
  - Palpitations [Recovered/Resolved]
  - Dizziness [Recovered/Resolved]
  - Wrong technique in product usage process [Recovered/Resolved]
  - Inappropriate schedule of product administration [Recovered/Resolved]

NARRATIVE: CASE EVENT DATE: 20220101
